FAERS Safety Report 6044453-4 (Version None)
Quarter: 2009Q1

REPORT INFORMATION
  Report Type: 
  Country: None (occurrence: None)
  Receive Date: 20090120
  Receipt Date: 20090108
  Transmission Date: 20090719
  Serious: Yes (Other)
  Sender: FDA-Public Use
  Company Number: BR-PFIZER INC-2008042422

PATIENT

DRUGS (2)
  1. VIAGRA [Suspect]
     Indication: ERECTILE DYSFUNCTION
     Route: 048
     Dates: start: 19980101
  2. CO-RENITEC [Concomitant]
     Route: 065

REACTIONS (4)
  - DEPRESSED MOOD [None]
  - DEPRESSION [None]
  - HAND FRACTURE [None]
  - LOWER LIMB FRACTURE [None]
